FAERS Safety Report 7705226-7 (Version None)
Quarter: 2011Q3

REPORT INFORMATION
  Report Type: 
  Country: None (occurrence: None)
  Receive Date: 20110822
  Receipt Date: 20110822
  Transmission Date: 20111222
  Serious: Yes (Hospitalization)
  Sender: FDA-Public Use
  Company Number: None

PATIENT
  Sex: Female
  Weight: 49.5 kg

DRUGS (11)
  1. ALLOPURINOL [Concomitant]
  2. PROMETHAZINE AND CODEINE SYRUP [Concomitant]
  3. CISPLATIN [Suspect]
     Dosage: 117 MG
     Dates: end: 20110801
  4. HYDROCODONE BITARTRATE AND IBUPROFEN [Concomitant]
  5. LORAZEPAM [Concomitant]
  6. DEXAMETHASONE [Concomitant]
  7. ETOPOSIDE [Suspect]
     Dosage: 438 MG
     Dates: end: 20110803
  8. APREPITANT TRIPAK [Concomitant]
  9. LIDOCAINE-PRILOCAINE [Concomitant]
  10. ONDANSETRON [Concomitant]
  11. PROCHLORPERAZINE [Concomitant]

REACTIONS (3)
  - NEUTROPHIL COUNT DECREASED [None]
  - PYREXIA [None]
  - WHITE BLOOD CELL COUNT DECREASED [None]
